FAERS Safety Report 9276202 (Version 1)
Quarter: 2013Q2

REPORT INFORMATION
  Report Type: Spontaneous
  Country: US (occurrence: None)
  Receive Date: 20130502
  Receipt Date: 20130502
  Transmission Date: 20140414
  Serious: Yes (Hospitalization)
  Sender: FDA-Public Use
  Company Number: None

PATIENT
  Age: 4 Year
  Sex: Female
  Weight: 14.3 kg

DRUGS (6)
  1. DAUNORUBICIN [Suspect]
     Dates: end: 20130214
  2. DEXAMETHASONE [Suspect]
     Dates: end: 20130227
  3. METHOTREXATE [Suspect]
     Dates: end: 20130313
  4. ONCASPAR [Suspect]
     Dates: end: 20130217
  5. VINCRISTINE SULFATE [Suspect]
     Dates: end: 20130307
  6. CYTARABINE [Suspect]
     Dates: end: 20130214

REACTIONS (2)
  - Bradycardia [None]
  - Hypotension [None]
